FAERS Safety Report 16468157 (Version 4)
Quarter: 2021Q4

REPORT INFORMATION
  Report Type: Spontaneous
  Country: DE (occurrence: DE)
  Receive Date: 20190624
  Receipt Date: 20211014
  Transmission Date: 20220303
  Serious: Yes (Other)
  Sender: FDA-Public Use
  Company Number: DE-002147023-PHHY2019DE131179

PATIENT
  Sex: Male

DRUGS (16)
  1. VALSARTAN [Suspect]
     Active Substance: VALSARTAN
     Indication: Hypertension
     Dosage: 1 DOSAGE FORM, ONCE A DAY (160/12.5 MG ONCE A DAY)
     Route: 065
     Dates: start: 201209
  2. HYDROCHLOROTHIAZIDE\VALSARTAN [Suspect]
     Active Substance: HYDROCHLOROTHIAZIDE\VALSARTAN
     Indication: Hypertension
     Dosage: 160/12.5 MG ONCE A DAY
     Route: 065
     Dates: start: 20140621, end: 201502
  3. HYDROCHLOROTHIAZIDE\VALSARTAN [Suspect]
     Active Substance: HYDROCHLOROTHIAZIDE\VALSARTAN
     Dosage: 160/12.5 MG ONCE A DAY
     Route: 065
     Dates: start: 201506, end: 201807
  4. HYDROCHLOROTHIAZIDE\VALSARTAN [Suspect]
     Active Substance: HYDROCHLOROTHIAZIDE\VALSARTAN
     Indication: Hypertension
     Dosage: 1 DOSAGE FORM, ONCE A DAY
     Route: 065
     Dates: start: 2000
  5. HYDROCHLOROTHIAZIDE\VALSARTAN [Suspect]
     Active Substance: HYDROCHLOROTHIAZIDE\VALSARTAN
     Dosage: 160/12.5 MG)
     Route: 065
     Dates: start: 201002, end: 201008
  6. HYDROCHLOROTHIAZIDE\VALSARTAN [Suspect]
     Active Substance: HYDROCHLOROTHIAZIDE\VALSARTAN
     Dosage: 320/12.5 MG
     Route: 065
     Dates: start: 201008, end: 201009
  7. HYDROCHLOROTHIAZIDE\VALSARTAN [Suspect]
     Active Substance: HYDROCHLOROTHIAZIDE\VALSARTAN
     Dosage: 160/12.5 MG
     Route: 065
     Dates: start: 201009, end: 201407
  8. HYDROCHLOROTHIAZIDE\VALSARTAN [Concomitant]
     Active Substance: HYDROCHLOROTHIAZIDE\VALSARTAN
     Indication: Product used for unknown indication
     Dosage: 160/12.5 MG
     Route: 065
     Dates: start: 201209, end: 201209
  9. HYDROCHLOROTHIAZIDE\VALSARTAN [Concomitant]
     Active Substance: HYDROCHLOROTHIAZIDE\VALSARTAN
     Dosage: 160/12.5 MG
     Route: 065
     Dates: start: 201502, end: 201506
  10. HYDROCHLOROTHIAZIDE\VALSARTAN [Concomitant]
     Active Substance: HYDROCHLOROTHIAZIDE\VALSARTAN
     Dosage: 160 MILLIGRAM, UNK
     Route: 065
     Dates: start: 20170703
  11. HYDROCHLOROTHIAZIDE\VALSARTAN [Concomitant]
     Active Substance: HYDROCHLOROTHIAZIDE\VALSARTAN
     Dosage: 160/12.5 MG
     Route: 065
     Dates: start: 201807
  12. NEBIDO [Concomitant]
     Active Substance: TESTOSTERONE UNDECANOATE
     Indication: Product used for unknown indication
     Dosage: 1000 MILLIGRAM FOR 3 MONTHS
     Route: 065
  13. METOPROLOL SUCCINATE [Concomitant]
     Active Substance: METOPROLOL SUCCINATE
     Indication: Product used for unknown indication
     Dosage: 190 MILLIGRAM, ONCE A DAY
     Route: 065
  14. Latanoprost + timolol maleate [Concomitant]
     Indication: Product used for unknown indication
     Dosage: UNK, ONCE A DAY (ONCE IN THE MORNING (1-0-0) )
     Route: 065
  15. METAMIZOLE [Concomitant]
     Active Substance: METAMIZOLE
     Indication: Product used for unknown indication
     Dosage: 500 MILLIGRAM , PRN (AS REQUIRE / ONCE IN THE MORNING, ONCE AT NOON, ONCE IN THE EVENING) )
     Route: 065
  16. METFORMIN HYDROCHLORIDE\SAXAGLIPTIN [Concomitant]
     Active Substance: METFORMIN HYDROCHLORIDE\SAXAGLIPTIN
     Indication: Product used for unknown indication
     Dosage: UNK, ONCE A DAY (BID (ONE IN THE MORNING, IN THE EVENING ) )
     Route: 065

REACTIONS (18)
  - Renal cyst [Unknown]
  - Fear [Unknown]
  - Testicular cyst [Unknown]
  - Type 2 diabetes mellitus [Unknown]
  - Gallbladder enlargement [Unknown]
  - Glaucoma [Unknown]
  - Listless [Unknown]
  - Disturbance in attention [Unknown]
  - Quality of life decreased [Unknown]
  - Mental disorder [Unknown]
  - Fatigue [Unknown]
  - Emotional distress [Unknown]
  - Anxiety [Unknown]
  - Sleep disorder [Unknown]
  - Lipoma [Unknown]
  - Hypertension [Unknown]
  - Fear [Unknown]
  - Flank pain [Unknown]

NARRATIVE: CASE EVENT DATE: 20050101
